FAERS Safety Report 19207040 (Version 1)
Quarter: 2021Q2

REPORT INFORMATION
  Report Type: Spontaneous
  Country: US (occurrence: US)
  Receive Date: 20210430
  Receipt Date: 20210430
  Transmission Date: 20210717
  Serious: No
  Sender: FDA-Public Use
  Company Number: US-SUNOVION-2021SUN001613

PATIENT
  Age: 61 Year
  Sex: Male

DRUGS (1)
  1. LATUDA [Suspect]
     Active Substance: LURASIDONE HYDROCHLORIDE
     Dosage: 30 MG
     Route: 048

REACTIONS (6)
  - Therapy cessation [Unknown]
  - Feeling abnormal [Unknown]
  - Electric shock sensation [Unknown]
  - Wrong technique in product usage process [Unknown]
  - Dizziness [Unknown]
  - Withdrawal syndrome [Unknown]
